FAERS Safety Report 9768852 (Version 2)
Quarter: 2014Q1

REPORT INFORMATION
  Report Type: Spontaneous
  Country: IN (occurrence: IN)
  Receive Date: 20131218
  Receipt Date: 20140103
  Transmission Date: 20141002
  Serious: Yes (Death, Life-Threatening, Hospitalization, Other)
  Sender: FDA-Public Use
  Company Number: IN-009507513-1312IND005988

PATIENT
  Age: 56 Year
  Sex: Male
  Weight: 70 kg

DRUGS (3)
  1. CANCIDAS [Suspect]
     Dosage: UNK
     Dates: start: 20131006
  2. ZIENAM [Concomitant]
     Dosage: UNK
  3. ZOREM [Concomitant]
     Dosage: UNK UNK, BID
     Dates: start: 201010

REACTIONS (6)
  - Hepatitis fulminant [Unknown]
  - Acute hepatic failure [Fatal]
  - Decreased appetite [Unknown]
  - Jaundice [Unknown]
  - Hepatic enzyme increased [Unknown]
  - Blood bilirubin increased [Unknown]
